FAERS Safety Report 12127525 (Version 1)
Quarter: 2016Q1

REPORT INFORMATION
  Report Type: Spontaneous
  Country: GB (occurrence: GB)
  Receive Date: 20160229
  Receipt Date: 20160229
  Transmission Date: 20160526
  Serious: Yes (Other)
  Sender: FDA-Public Use
  Company Number: GB-TEVA-636435ACC

PATIENT
  Age: 25 Year
  Sex: Male
  Weight: 98 kg

DRUGS (4)
  1. AMITRIPTYLINE HYDROCHLORIDE. [Concomitant]
     Active Substance: AMITRIPTYLINE HYDROCHLORIDE
     Dosage: USE AS DIRECTED
     Dates: start: 20151112, end: 20151210
  2. MIGRIL [Concomitant]
     Active Substance: CAFFEINE\CYCLIZINE HYDROCHLORIDE\ERGOTAMINE TARTRATE
     Dosage: 1 TABLET AT ONSET, REPEAT AFTER 30 MINS
     Dates: start: 20160127, end: 20160130
  3. SUMATRIPTAN. [Concomitant]
     Active Substance: SUMATRIPTAN
     Dosage: TAKE ONE ON ONSET, REPEAT AFTER 2 HOURS IF REQUIRED
     Dates: start: 20160126, end: 20160129
  4. PROPRANOLOL [Suspect]
     Active Substance: PROPRANOLOL\PROPRANOLOL HYDROCHLORIDE
     Dates: start: 20160210

REACTIONS (3)
  - Dysarthria [Recovered/Resolved]
  - Dyspnoea [Unknown]
  - Facial paresis [Unknown]

NARRATIVE: CASE EVENT DATE: 20160210
